FAERS Safety Report 10479018 (Version 3)
Quarter: 2014Q4

REPORT INFORMATION
  Report Type: Report from Study
  Country: BR (occurrence: BR)
  Receive Date: 20140926
  Receipt Date: 20141016
  Transmission Date: 20150528
  Serious: Yes (Hospitalization, Other)
  Sender: FDA-Public Use
  Company Number: BR-ABBVIE-11P-020-0846742-00

PATIENT
  Age: 57 Year
  Sex: Female
  Weight: 56 kg

DRUGS (38)
  1. HUMIRA [Suspect]
     Active Substance: ADALIMUMAB
     Route: 058
     Dates: start: 2011
  2. CALCITONIN [Concomitant]
     Active Substance: CALCITONIN
     Indication: BONE DISORDER
  3. SACCHAROMYCES BOULARDII -17 [Concomitant]
     Indication: DYSBACTERIOSIS
     Route: 048
  4. METOPROLOL SUCCINATE. [Concomitant]
     Active Substance: METOPROLOL SUCCINATE
     Indication: HYPERTENSION
     Route: 048
     Dates: start: 201106
  5. HYDROCORTISONE. [Suspect]
     Active Substance: HYDROCORTISONE
     Route: 042
  6. UNKNOWN CORTICOSTEROID [Concomitant]
     Indication: CROHN^S DISEASE
     Dosage: ON A DAILY BASIS
     Route: 048
  7. ZINC [Concomitant]
     Active Substance: ZINC\ZINC CHLORIDE
     Indication: CEREBRAL ATROPHY
     Route: 048
  8. CALCITONIN [Concomitant]
     Active Substance: CALCITONIN
     Indication: MYALGIA
  9. CITONEURIN [Concomitant]
     Active Substance: CYANOCOBALAMIN\PYRIDOXINE HYDROCHLORIDE\THIAMINE
     Indication: ILEECTOMY
  10. SOLUBLE FIBER [Concomitant]
     Indication: DYSBACTERIOSIS
  11. HYDROCORTISONE. [Suspect]
     Active Substance: HYDROCORTISONE
     Indication: CROHN^S DISEASE
     Route: 042
  12. ZINC [Concomitant]
     Active Substance: ZINC\ZINC CHLORIDE
     Indication: MALNUTRITION
  13. PENTASA [Concomitant]
     Active Substance: MESALAMINE
     Indication: CROHN^S DISEASE
     Route: 048
     Dates: end: 201001
  14. PENTASA [Concomitant]
     Active Substance: MESALAMINE
  15. GLUCOSAMINE [Concomitant]
     Active Substance: GLUCOSAMINE
     Indication: CARTILAGE OPERATION
     Route: 048
     Dates: start: 2007
  16. CALCIUM [Concomitant]
     Active Substance: CALCIUM
     Indication: OSTEOPOROSIS
     Route: 048
     Dates: start: 2006
  17. HUMIRA [Suspect]
     Active Substance: ADALIMUMAB
     Indication: CROHN^S DISEASE
     Dosage: UNSPECIFIED STARTING DOSE
     Route: 058
     Dates: start: 201107, end: 201107
  18. CHONDROITIN SULFATE (BOVINE)\GLUCOSAMINE SULFATE [Concomitant]
     Active Substance: CHONDROITIN SULFATE (BOVINE)\GLUCOSAMINE SULFATE
     Indication: SYNOVIAL DISORDER
     Dosage: 1500 MG AND CHONDROITIN 1200 MG
  19. PREDNISONE. [Concomitant]
     Active Substance: PREDNISONE
     Indication: CROHN^S DISEASE
     Route: 048
     Dates: start: 1991
  20. HYDROCORTISONE. [Suspect]
     Active Substance: HYDROCORTISONE
     Route: 042
  21. SIRDALUD [Suspect]
     Active Substance: TIZANIDINE
     Indication: PRODUCT USED FOR UNKNOWN INDICATION
     Route: 065
  22. ALENDRONATE [Concomitant]
     Active Substance: ALENDRONATE SODIUM
     Indication: OSTEOPOROSIS
     Route: 048
  23. CHONDROITIN SULFATE (BOVINE)\GLUCOSAMINE SULFATE [Concomitant]
     Active Substance: CHONDROITIN SULFATE (BOVINE)\GLUCOSAMINE SULFATE
     Indication: CHONDROPATHY
  24. CALCIUM +VIT D [Concomitant]
     Active Substance: CALCIUM\VITAMIN D
     Indication: BONE DISORDER
  25. MESALAZINE [Concomitant]
     Active Substance: MESALAMINE
     Indication: CROHN^S DISEASE
  26. CITONEURIN [Concomitant]
     Active Substance: CYANOCOBALAMIN\PYRIDOXINE HYDROCHLORIDE\THIAMINE
     Indication: VITAMIN B12 DEFICIENCY
     Route: 030
  27. CALCIUM SALMON [Concomitant]
     Indication: OSTEOPOROSIS
     Route: 055
     Dates: start: 2008
  28. CORTICOID [Suspect]
     Active Substance: UNSPECIFIED INGREDIENT
     Indication: CROHN^S DISEASE
     Route: 065
  29. HYDROCORTISONE. [Suspect]
     Active Substance: HYDROCORTISONE
     Route: 042
  30. CALCITONIN [Concomitant]
     Active Substance: CALCITONIN
     Indication: ARTHRALGIA
     Route: 045
  31. CHONDROITIN SULFATE (BOVINE)\GLUCOSAMINE SULFATE [Concomitant]
     Active Substance: CHONDROITIN SULFATE (BOVINE)\GLUCOSAMINE SULFATE
     Indication: PAIN
  32. CHONDROITIN [Concomitant]
     Active Substance: CHONDROITIN
     Indication: CARTILAGE OPERATION
     Route: 048
     Dates: start: 2007
  33. RIVOTRIL [Concomitant]
     Active Substance: CLONAZEPAM
     Indication: SLEEP DISORDER THERAPY
     Route: 048
  34. ALENDRONATE SODIUM W/CALCIUM CARBONATE [Concomitant]
     Indication: OSTEOPOROSIS
     Route: 048
     Dates: start: 2009
  35. SELOZOK [Concomitant]
     Active Substance: METOPROLOL SUCCINATE
     Indication: CROHN^S DISEASE
  36. MESACOL [Concomitant]
     Active Substance: MESALAMINE
     Indication: CROHN^S DISEASE
  37. MESACOL [Concomitant]
     Active Substance: MESALAMINE
     Route: 048
  38. FLORATIL [Concomitant]
     Indication: DYSBACTERIOSIS

REACTIONS (44)
  - Injury [Recovered/Resolved]
  - Syncope [Recovered/Resolved]
  - Blood pressure decreased [Recovered/Resolved]
  - Inappropriate schedule of drug administration [Unknown]
  - Drug effect incomplete [Not Recovered/Not Resolved]
  - Malaise [Recovering/Resolving]
  - Nausea [Recovering/Resolving]
  - Depression [Recovered/Resolved]
  - Decreased appetite [Recovered/Resolved]
  - Diarrhoea [Recovering/Resolving]
  - Hypertension [Unknown]
  - Syncope [Recovered/Resolved]
  - Headache [Recovered/Resolved]
  - Fatigue [Not Recovered/Not Resolved]
  - Dysstasia [Not Recovered/Not Resolved]
  - Fatigue [Recovering/Resolving]
  - Tachycardia [Recovering/Resolving]
  - Rhinorrhoea [Not Recovered/Not Resolved]
  - Nasal discharge discolouration [Unknown]
  - Drug ineffective [Unknown]
  - Tremor [Recovered/Resolved]
  - Weight decreased [Recovering/Resolving]
  - Ill-defined disorder [Recovering/Resolving]
  - Malnutrition [Recovered/Resolved]
  - General physical health deterioration [Unknown]
  - Catarrh [Unknown]
  - Asthenia [Unknown]
  - Fall [Recovered/Resolved]
  - Neck pain [Recovered/Resolved]
  - Rhinorrhoea [Recovered/Resolved]
  - Activities of daily living impaired [Recovering/Resolving]
  - Feeling cold [Not Recovered/Not Resolved]
  - Malaise [Unknown]
  - Mood swings [Not Recovered/Not Resolved]
  - Skin hypertrophy [Unknown]
  - Altered state of consciousness [Recovered/Resolved]
  - Dyspnoea [Recovered/Resolved]
  - Sinusitis [Not Recovered/Not Resolved]
  - Labyrinthitis [Recovered/Resolved]
  - Dyspnoea [Not Recovered/Not Resolved]
  - Insomnia [Recovering/Resolving]
  - Musculoskeletal pain [Recovered/Resolved]
  - Panic attack [Recovered/Resolved]
  - Tachycardia [Recovering/Resolving]

NARRATIVE: CASE EVENT DATE: 2011
